FAERS Safety Report 4685293-8 (Version None)
Quarter: 2005Q2

REPORT INFORMATION
  Report Type: 
  Country: None (occurrence: None)
  Receive Date: 20050608
  Receipt Date: 20050601
  Transmission Date: 20051028
  Serious: Yes (Hospitalization)
  Sender: FDA-Public Use
  Company Number: US-JNJFOC-20050601390

PATIENT
  Sex: Male

DRUGS (8)
  1. RISPERDAL CONSTA [Suspect]
     Route: 030
  2. RISPERDAL CONSTA [Suspect]
     Route: 030
  3. RISPERDAL CONSTA [Suspect]
     Route: 030
  4. ATIVAN [Concomitant]
     Route: 049
  5. ZOCOR [Concomitant]
     Route: 049
  6. ZANTAC [Concomitant]
     Route: 049
  7. LISINOPRIL [Concomitant]
     Route: 049
  8. ALBUTEROL [Concomitant]
     Route: 049

REACTIONS (3)
  - DYSKINESIA [None]
  - PSYCHIATRIC SYMPTOM [None]
  - TREMOR [None]
